FAERS Safety Report 21643182 (Version 2)
Quarter: 2023Q2

REPORT INFORMATION
  Report Type: Report from Study
  Country: US (occurrence: US)
  Receive Date: 20221125
  Receipt Date: 20230403
  Transmission Date: 20230722
  Serious: Yes (Other)
  Sender: FDA-Public Use
  Company Number: US-ABBVIE-4214112

PATIENT
  Age: 70 Year
  Sex: Female

DRUGS (1)
  1. HUMIRA [Suspect]
     Active Substance: ADALIMUMAB
     Indication: Psoriatic arthropathy
     Dosage: FORM STRENGTH 40MG, CITRATE FREE
     Route: 058
     Dates: start: 20220624

REACTIONS (9)
  - Knee arthroplasty [Recovering/Resolving]
  - Fall [Unknown]
  - Localised infection [Recovering/Resolving]
  - Knee arthroplasty [Unknown]
  - Skin exfoliation [Recovering/Resolving]
  - Arthralgia [Not Recovered/Not Resolved]
  - Rash [Recovering/Resolving]
  - Head injury [Unknown]
  - Joint instability [Unknown]

NARRATIVE: CASE EVENT DATE: 20220701
